FAERS Safety Report 20178258 (Version 1)
Quarter: 2021Q4

REPORT INFORMATION
  Report Type: Spontaneous
  Country: US (occurrence: US)
  Receive Date: 20211213
  Receipt Date: 20211213
  Transmission Date: 20220303
  Serious: No
  Sender: FDA-Public Use
  Company Number: US-GW PHARMA-202112USGW06111

PATIENT

DRUGS (1)
  1. EPIDIOLEX [Suspect]
     Active Substance: CANNABIDIOL
     Indication: Lennox-Gastaut syndrome
     Dosage: 24.09 MG/KG/DAY, 1420 MILLIGRAM, QD
     Route: 048
     Dates: start: 202002

REACTIONS (2)
  - Weight increased [Unknown]
  - Prescribed overdose [Unknown]
